FAERS Safety Report 12292940 (Version 2)
Quarter: 2016Q2

REPORT INFORMATION
  Report Type: Report from Study
  Country: US (occurrence: US)
  Receive Date: 20160421
  Receipt Date: 20160504
  Transmission Date: 20160815
  Serious: Yes (Disabling)
  Sender: FDA-Public Use
  Company Number: US-AMGEN-USASL2016045517

PATIENT
  Age: 63 Year
  Weight: 64.85 kg

DRUGS (23)
  1. BENAZEPRIL                         /00909102/ [Concomitant]
     Dosage: 5 MG, QD, FOR 30 DAYS
     Route: 048
     Dates: start: 20150807
  2. NAPROSYN [Concomitant]
     Active Substance: NAPROXEN
     Dosage: 500 MG, BID, FOR 30 DAYS
     Route: 048
     Dates: start: 20150807
  3. NITROLINGUAL [Concomitant]
     Active Substance: NITROGLYCERIN
     Dosage: UNK
     Dates: start: 20130813
  4. XANAX [Concomitant]
     Active Substance: ALPRAZOLAM
     Dosage: 1 MG, TID, 30 DAYS
     Route: 048
     Dates: start: 20160412
  5. GLUCOSAMINE [Concomitant]
     Active Substance: GLUCOSAMINE
     Dosage: 500 MG, QD
     Route: 048
  6. PLETAL [Concomitant]
     Active Substance: CILOSTAZOL
     Dosage: 100 MG, BID, 1 TAB HALF HR BEFORE AN 2 HR AFTER BF, 30 DAYS
     Route: 048
     Dates: start: 20151007
  7. ANDROGEL [Concomitant]
     Active Substance: TESTOSTERONE
     Dosage: 1.6, 2 PUMPS
     Dates: start: 20140508
  8. ASPIR 81 [Concomitant]
     Dosage: 81 MG, QD, 1 TABLET
     Route: 048
  9. RANEXA [Concomitant]
     Active Substance: RANOLAZINE
     Dosage: 500 MG, BID, 30 DAYS
     Route: 048
     Dates: start: 20151111
  10. REPATHA [Suspect]
     Active Substance: EVOLOCUMAB
     Indication: LOW DENSITY LIPOPROTEIN INCREASED
     Dosage: 140 MG, Q2WK
     Route: 058
     Dates: start: 20151020
  11. LIVALO [Concomitant]
     Active Substance: PITAVASTATIN CALCIUM
     Dosage: , FOR 90 DAYS, 4 MG, QD
     Route: 048
     Dates: start: 20150715
  12. PLAVIX [Concomitant]
     Active Substance: CLOPIDOGREL BISULFATE
     Dosage: 75 MG, QD, 30 DAYS
     Route: 048
     Dates: start: 20140911
  13. TYLENOL WITH CODEINE [Concomitant]
     Active Substance: ACETAMINOPHEN\CODEINE PHOSPHATE
     Dosage: 300-30 MG, AS NEEDED, 30 DAYS
     Route: 048
     Dates: start: 20160412
  14. PITAVASTATIN [Concomitant]
     Active Substance: PITAVASTATIN
     Dosage: 4 MG, UNK
  15. FOLTX [Concomitant]
     Active Substance: CYANOCOBALAMIN CO-57\FOLIC ACID\PYRIDOXINE HYDROCHLORIDE
     Dosage: 1 DF 13-25 MG, QD, FOR 30 DAYS
     Route: 048
     Dates: start: 20150212
  16. LYRICA [Concomitant]
     Active Substance: PREGABALIN
     Dosage: 75 MG, BID, FOR 30 DAYS
     Route: 048
     Dates: start: 20151208
  17. NEURONTIN [Concomitant]
     Active Substance: GABAPENTIN
     Indication: PAIN IN EXTREMITY
     Dosage: 300 MG, TID
     Route: 048
     Dates: start: 20150507
  18. TRIAMCINOLONE ACETONIDE. [Concomitant]
     Active Substance: TRIAMCINOLONE ACETONIDE
     Dosage: , BID, 30 DAYS
     Route: 061
     Dates: start: 20160107
  19. STENDRA [Concomitant]
     Active Substance: AVANAFIL
     Dosage: 200 MG, 30 MINLITES BEFBRE SEXUAL ACTIVITY FOR 30 DAYS
     Route: 048
     Dates: start: 20151208
  20. PERCOCET                           /00446701/ [Concomitant]
     Active Substance: ACETAMINOPHEN\OXYCODONE HYDROCHLORIDE\OXYCODONE TEREPHTHALATE
     Dosage: 10-325 MG, PRN FOR 30 DADYS
     Route: 048
     Dates: start: 20160412
  21. CIALIS [Concomitant]
     Active Substance: TADALAFIL
     Dosage: 5 MG, QD, FOR 30 DAYS
     Route: 048
     Dates: start: 20141111
  22. COLCRYS [Concomitant]
     Active Substance: COLCHICINE
     Indication: GOUT
     Dosage: TAKE 2 TABLELS (1.2 MG) BY ORAL ROUTE INITIALLY, THEN TAKE 1 TABLET IN
     Route: 048
     Dates: start: 20121009
  23. LOVAZA [Concomitant]
     Active Substance: OMEGA-3-ACID ETHYL ESTERS
     Dosage: 1 G, TID, TAKE 2 CAPSULES BY ORAL ROUTE 3 TIMES A DAY FOR 30 DAYS
     Route: 048
     Dates: start: 20150807

REACTIONS (3)
  - Pain in extremity [Recovering/Resolving]
  - Myalgia [Recovering/Resolving]
  - Tendonitis [Not Recovered/Not Resolved]

NARRATIVE: CASE EVENT DATE: 20160412
